FAERS Safety Report 13915299 (Version 2)
Quarter: 2017Q4

REPORT INFORMATION
  Report Type: Spontaneous
  Country: AU (occurrence: AU)
  Receive Date: 20170829
  Receipt Date: 20171010
  Transmission Date: 20180320
  Serious: Yes (Other)
  Sender: FDA-Public Use
  Company Number: AU-ASTELLAS-2017US033812

PATIENT
  Sex: Female
  Weight: 110 kg

DRUGS (1)
  1. BETMIGA [Suspect]
     Active Substance: MIRABEGRON
     Indication: URINARY INCONTINENCE
     Route: 065

REACTIONS (6)
  - Epilepsy [Unknown]
  - Eating disorder [Unknown]
  - Dysuria [Unknown]
  - Weight increased [Unknown]
  - Bipolar disorder [Unknown]
  - Mental disorder [Unknown]
